FAERS Safety Report 6771864-1 (Version None)
Quarter: 2010Q2

REPORT INFORMATION
  Report Type: 
  Country: None (occurrence: None)
  Receive Date: 20100616
  Receipt Date: 20100319
  Transmission Date: 20101027
  Serious: No
  Sender: FDA-Public Use
  Company Number: US-ASTRAZENECA-2010SE12300

PATIENT
  Sex: Female
  Weight: 58.1 kg

DRUGS (5)
  1. ENTOCORT EC [Suspect]
     Indication: CROHN'S DISEASE
     Route: 048
     Dates: start: 20100303
  2. PROTONIX [Concomitant]
  3. ASACOL [Concomitant]
  4. CITALOPRAM HYDROBROMIDE [Concomitant]
  5. XIFAXAN [Concomitant]

REACTIONS (4)
  - DRUG INEFFECTIVE [None]
  - HAEMORRHAGE [None]
  - MICTURITION URGENCY [None]
  - NIGHT SWEATS [None]
